FAERS Safety Report 6105716-7 (Version None)
Quarter: 2009Q1

REPORT INFORMATION
  Report Type: 
  Country: None (occurrence: None)
  Receive Date: 20090304
  Receipt Date: 20090304
  Transmission Date: 20090719
  Serious: No
  Sender: FDA-Public Use
  Company Number: None

PATIENT
  Sex: Male

DRUGS (10)
  1. ALUMINUM-POTASSIUM-SULFATE [Suspect]
  2. ALLOPURINOL [Concomitant]
  3. CASODEX [Concomitant]
  4. CELEBREX [Concomitant]
  5. ENALAPRIL [Concomitant]
  6. LORAZEPAM [Concomitant]
  7. CITALOPRAM HYDROBROMIDE [Concomitant]
  8. HYDROCHLOROTHIAZIDE [Concomitant]
  9. MULTI-VITAMIN [Concomitant]
  10. CIPROFLOXACIN [Concomitant]

REACTIONS (3)
  - BLOOD CREATININE INCREASED [None]
  - DRUG TOXICITY [None]
  - MENTAL STATUS CHANGES [None]
